FAERS Safety Report 4616179-2 (Version None)
Quarter: 2005Q1

REPORT INFORMATION
  Report Type: 
  Country: None (occurrence: None)
  Receive Date: 20050321
  Receipt Date: 20040526
  Transmission Date: 20050727
  Serious: Yes (Hospitalization)
  Sender: FDA-Public Use
  Company Number: 8143

PATIENT
  Age: 78 Year
  Sex: Male

DRUGS (1)
  1. AMIODARONE [Suspect]
     Dosage: 200 MG

REACTIONS (10)
  - BACTERIURIA [None]
  - CHOLANGITIS [None]
  - CONSTIPATION [None]
  - CORNEAL DEPOSITS [None]
  - HEPATIC STEATOSIS [None]
  - HYPOTHYROIDISM [None]
  - JAUNDICE CHOLESTATIC [None]
  - KERATITIS [None]
  - PROTEINURIA [None]
  - WEIGHT DECREASED [None]
